FAERS Safety Report 18842153 (Version 1)
Quarter: 2021Q1

REPORT INFORMATION
  Report Type: Other
  Country: US (occurrence: US)
  Receive Date: 20210204
  Receipt Date: 20210204
  Transmission Date: 20210419
  Serious: Yes (Other)
  Sender: FDA-Public Use
  Company Number: US-ROCHE-2759511

PATIENT
  Sex: Female

DRUGS (2)
  1. COTELLIC [Suspect]
     Active Substance: COBIMETINIB
     Indication: METASTASIS
     Dosage: TAKE 1 TABLET BY MOUTH DAILY ON DAYS 1?21 OF A 28
     Route: 048
  2. ZELBORAF [Suspect]
     Active Substance: VEMURAFENIB
     Indication: METASTASIS
     Dosage: TAKE 1 TABLET BY MOUTH TWICE A DAY
     Route: 048

REACTIONS (10)
  - Erythema [Unknown]
  - Thrombosis [Unknown]
  - Retinal tear [Unknown]
  - Photosensitivity reaction [Unknown]
  - Macule [Unknown]
  - Arthritis [Unknown]
  - Intentional product use issue [Unknown]
  - Skin exfoliation [Unknown]
  - Cough [Unknown]
  - Off label use [Unknown]
